FAERS Safety Report 22772374 (Version 4)
Quarter: 2024Q4

REPORT INFORMATION
  Report Type: Spontaneous
  Country: US (occurrence: US)
  Receive Date: 20230801
  Receipt Date: 20241202
  Transmission Date: 20250115
  Serious: Yes (Other)
  Sender: NOVARTIS
  Company Number: US-002147023-NVSC2023US167424

PATIENT
  Sex: Male

DRUGS (1)
  1. COSENTYX [Suspect]
     Active Substance: SECUKINUMAB
     Indication: Product used for unknown indication
     Dosage: 300 MG, QMO, (150 X 2 EVERY 28 DAYS)
     Route: 058

REACTIONS (3)
  - Multiple fractures [Unknown]
  - Gait disturbance [Unknown]
  - Dysstasia [Unknown]
